FAERS Safety Report 8521120-6 (Version None)
Quarter: 2012Q3

REPORT INFORMATION
  Report Type: 
  Country: None (occurrence: None)
  Receive Date: 20120719
  Receipt Date: 20120711
  Transmission Date: 20120928
  Serious: Yes (Death)
  Sender: FDA-Public Use
  Company Number: DE-ROCHE-1089175

PATIENT

DRUGS (1)
  1. AVASTIN [Suspect]
     Indication: COLON CANCER
     Dates: start: 20050101

REACTIONS (2)
  - IMPAIRED HEALING [None]
  - HAEMORRHAGE [None]
